FAERS Safety Report 20758066 (Version 2)
Quarter: 2022Q2

REPORT INFORMATION
  Report Type: Spontaneous
  Country: US (occurrence: US)
  Receive Date: 20220427
  Receipt Date: 20220629
  Transmission Date: 20220720
  Serious: No
  Sender: FDA-Public Use
  Company Number: US-PFIZER INC-202101326530

PATIENT
  Age: 73 Year
  Sex: Female
  Weight: 61.23 kg

DRUGS (3)
  1. CHANTIX [Suspect]
     Active Substance: VARENICLINE TARTRATE
     Indication: Smoking cessation therapy
     Dosage: UNK
  2. CHANTIX [Suspect]
     Active Substance: VARENICLINE TARTRATE
     Dosage: UNK (0.5)
     Dates: start: 20210728, end: 20210731
  3. CHANTIX [Suspect]
     Active Substance: VARENICLINE TARTRATE
     Dosage: UNK
     Dates: start: 2021

REACTIONS (8)
  - Drug ineffective [Unknown]
  - Malaise [Recovered/Resolved]
  - Headache [Recovered/Resolved]
  - Abdominal pain upper [Recovered/Resolved]
  - Abdominal pain upper [Unknown]
  - Headache [Unknown]
  - Malaise [Unknown]
  - Recalled product administered [Unknown]

NARRATIVE: CASE EVENT DATE: 20210701
